FAERS Safety Report 5839785-6 (Version None)
Quarter: 2008Q3

REPORT INFORMATION
  Report Type: 
  Country: None (occurrence: None)
  Receive Date: 20080807
  Receipt Date: 20080807
  Transmission Date: 20090109
  Serious: No
  Sender: FDA-Public Use
  Company Number: None

PATIENT

DRUGS (5)
  1. HUMIRA - ABBOTT 40 MG [Suspect]
     Indication: RHEUMATOID ARTHRITIS
     Dosage: 40MG Q 2 WEEKS I.M.
     Route: 030
     Dates: start: 20050920, end: 20070308
  2. HUMIRA SSZ [Concomitant]
  3. HCQ [Concomitant]
  4. PNEUMOVAX 23 [Concomitant]
  5. AZATHIAPRINE [Concomitant]

REACTIONS (3)
  - MULTIFOCAL MOTOR NEUROPATHY [None]
  - MUSCULAR WEAKNESS [None]
  - PERONEAL NERVE PALSY [None]
